FAERS Safety Report 7174561-6 (Version None)
Quarter: 2010Q4

REPORT INFORMATION
  Report Type: 
  Country: None (occurrence: None)
  Receive Date: 20101202
  Receipt Date: 20101119
  Transmission Date: 20110411
  Serious: Yes (Hospitalization, Other)
  Sender: FDA-Public Use
  Company Number: BAYER CASE ID: 201047768GPV

PATIENT
  Age: 56 Year
  Sex: Female

DRUGS (4)
  1. ANGELIQ [Suspect]
     Indication: HORMONE REPLACEMENT THERAPY
     Dosage: 1 DF ORAL, ORAL
     Route: 048
     Dates: start: 20100317, end: 20101014
  2. ANGELIQ [Suspect]
     Indication: HORMONE REPLACEMENT THERAPY
     Dosage: 1 DF ORAL, ORAL
     Route: 048
     Dates: start: 20101025
  3. CARDIOSTATIN (LOVASTATIN) [Concomitant]
  4. CARDIOMAGNYL (ACETYLSALICYLIC ACID) [Concomitant]

REACTIONS (3)
  - BRONCHOSPASM [None]
  - DRUG INEFFECTIVE [None]
  - OSTEOCHONDROSIS [None]
